FAERS Safety Report 24791114 (Version 1)
Quarter: 2024Q4

REPORT INFORMATION
  Report Type: Report from Study
  Country: CA (occurrence: CA)
  Receive Date: 20241230
  Receipt Date: 20241230
  Transmission Date: 20250115
  Serious: Yes (Hospitalization)
  Sender: ABBVIE
  Company Number: CA-ABBVIE-6064650

PATIENT
  Age: 51 Year
  Sex: Female

DRUGS (1)
  1. SKYRIZI [Suspect]
     Active Substance: RISANKIZUMAB-RZAA
     Indication: Psoriasis
     Dosage: INJECT AT WEEK FOUR THEN EVERY 12 WEEKS
     Route: 058
     Dates: start: 20241111, end: 20241224

REACTIONS (1)
  - Vasculitis [Unknown]

NARRATIVE: CASE EVENT DATE: 20240101
